FAERS Safety Report 9701606 (Version 2)
Quarter: 2013Q4

REPORT INFORMATION
  Report Type: Spontaneous
  Country: US (occurrence: US)
  Receive Date: 20131119
  Receipt Date: 20131119
  Transmission Date: 20140711
  Serious: No
  Sender: FDA-Public Use
  Company Number: US-ORACLE-2011S1000108

PATIENT
  Age: 54 Year
  Sex: Female
  Weight: 142.88 kg

DRUGS (10)
  1. KRYSTEXXA INJECTION [Suspect]
     Indication: GOUTY TOPHUS
     Route: 042
     Dates: start: 20111110, end: 20111110
  2. KRYSTEXXA INJECTION [Suspect]
     Indication: GOUTY TOPHUS
     Route: 042
     Dates: start: 20111125, end: 20111125
  3. ALLEGRA [Concomitant]
     Indication: PREMEDICATION
     Route: 048
     Dates: start: 20111109, end: 20111109
  4. ALLEGRA [Concomitant]
     Indication: PREMEDICATION
     Route: 048
     Dates: start: 20111110, end: 20111110
  5. TYLENOL /00020001/ [Concomitant]
     Indication: PREMEDICATION
     Route: 048
     Dates: start: 20111110, end: 20111110
  6. ATIVAN [Concomitant]
     Indication: PREMEDICATION
     Route: 042
     Dates: start: 20111110, end: 20111110
  7. HYDROCORTISONE [Concomitant]
     Indication: PREMEDICATION
     Route: 042
     Dates: start: 20111110, end: 20111110
  8. PERCOCET /00446701/ [Concomitant]
     Indication: PAIN
  9. INSULIN [Concomitant]
     Indication: DIABETES MELLITUS
  10. DIURETICS [Concomitant]
     Indication: FLUID RETENTION

REACTIONS (2)
  - Pruritus generalised [Not Recovered/Not Resolved]
  - Gout [Not Recovered/Not Resolved]
